FAERS Safety Report 18324657 (Version 1)
Quarter: 2020Q3

REPORT INFORMATION
  Report Type: Spontaneous
  Country: US (occurrence: US)
  Receive Date: 20200929
  Receipt Date: 20200929
  Transmission Date: 20201103
  Serious: No
  Sender: FDA-Public Use
  Company Number: US-BION-008531

PATIENT
  Age: 68 Year
  Sex: Male

DRUGS (1)
  1. BIONPHARMA^S LOPERAMIDE ANTI?DIARRHEAL CAPSULE UNSPECIFIED [Suspect]
     Active Substance: LOPERAMIDE HYDROCHLORIDE
     Indication: PRODUCT USED FOR UNKNOWN INDICATION
     Dosage: ONE EVERY OTHER DAY SINCE TWO MONTHS

REACTIONS (3)
  - Incorrect product administration duration [Not Recovered/Not Resolved]
  - Incorrect dose administered [Not Recovered/Not Resolved]
  - Blood glucose increased [Unknown]
